FAERS Safety Report 6477071-4 (Version None)
Quarter: 2009Q4

REPORT INFORMATION
  Report Type: 
  Country: None (occurrence: None)
  Receive Date: 20091202
  Receipt Date: 20091117
  Transmission Date: 20100525
  Serious: Yes (Other)
  Sender: FDA-Public Use
  Company Number: 8054812

PATIENT
  Age: 28 Year
  Sex: Female
  Weight: 63 kg

DRUGS (4)
  1. KEPPRA [Suspect]
     Indication: EPILEPSY
     Dosage: 500 MG 2/D PO
     Route: 048
     Dates: start: 20091003, end: 20091105
  2. LAMOTRIGINE [Concomitant]
  3. NORETHISTERON [Concomitant]
  4. IMPLANON [Concomitant]

REACTIONS (1)
  - ENAMEL ANOMALY [None]
